FAERS Safety Report 12165413 (Version 1)
Quarter: 2016Q1

REPORT INFORMATION
  Report Type: Spontaneous
  Country: US (occurrence: US)
  Receive Date: 20160309
  Receipt Date: 20160309
  Transmission Date: 20160526
  Serious: No
  Sender: FDA-Public Use
  Company Number: US-BAYER-2016-036168

PATIENT
  Age: 34 Year
  Sex: Male

DRUGS (4)
  1. ALEVE [Suspect]
     Active Substance: NAPROXEN SODIUM
     Indication: HEADACHE
     Dosage: 4-6, DF IN 24 HOUR
  2. IMITREX [Concomitant]
     Active Substance: SUMATRIPTAN SUCCINATE
     Dosage: UNK
  3. ALEVE [Suspect]
     Active Substance: NAPROXEN SODIUM
     Indication: HEADACHE
     Dosage: 2 DF, ONCE
  4. IBUPROFEN. [Concomitant]
     Active Substance: IBUPROFEN
     Dosage: 4 DF, ONCE

REACTIONS (3)
  - Drug ineffective [None]
  - Vomiting [None]
  - Product use issue [None]
